FAERS Safety Report 25532651 (Version 2)
Quarter: 2025Q3

REPORT INFORMATION
  Report Type: Spontaneous
  Country: US (occurrence: US)
  Receive Date: 20250709
  Receipt Date: 20250720
  Transmission Date: 20251020
  Serious: Yes (Hospitalization, Other)
  Sender: AUROBINDO
  Company Number: US-MLMSERVICE-20250623-PI548420-00306-1

PATIENT
  Age: 57 Year
  Sex: Female

DRUGS (7)
  1. PREDNISONE [Suspect]
     Active Substance: PREDNISONE
     Indication: Immunosuppressant drug therapy
     Dosage: 5 MILLIGRAM, ONCE A DAY
     Route: 048
  2. TACROLIMUS [Suspect]
     Active Substance: TACROLIMUS
     Indication: Immunosuppressant drug therapy
     Dosage: 0.5 MILLIGRAM, ONCE A DAY
     Route: 065
  3. VORICONAZOLE [Concomitant]
     Active Substance: VORICONAZOLE
     Indication: Antifungal treatment
  4. GANCICLOVIR [Concomitant]
     Active Substance: GANCICLOVIR
     Indication: Antifungal treatment
  5. AMPHOTERICIN B [Concomitant]
     Active Substance: AMPHOTERICIN B
     Indication: Antifungal treatment
     Route: 042
  6. FLUCYTOSINE [Concomitant]
     Active Substance: FLUCYTOSINE
     Indication: Antifungal treatment
     Route: 042
  7. FLUCONAZOLE [Concomitant]
     Active Substance: FLUCONAZOLE
     Indication: Antifungal treatment
     Route: 065

REACTIONS (6)
  - Cryptococcosis [Recovering/Resolving]
  - Meningitis cryptococcal [Recovering/Resolving]
  - Pneumonia cryptococcal [Recovering/Resolving]
  - Endophthalmitis [Recovering/Resolving]
  - Eye infection toxoplasmal [Recovering/Resolving]
  - Cytomegalovirus infection [Recovering/Resolving]
